FAERS Safety Report 6446886-0 (Version None)
Quarter: 2009Q4

REPORT INFORMATION
  Report Type: 
  Country: None (occurrence: None)
  Receive Date: 20091110
  Receipt Date: 20090914
  Transmission Date: 20100525
  Serious: Yes (Hospitalization)
  Sender: FDA-Public Use
  Company Number: 1000008477

PATIENT
  Age: 45 Year
  Sex: Female
  Weight: 69.8539 kg

DRUGS (8)
  1. SAVELLA [Suspect]
     Indication: FIBROMYALGIA
     Dosage: 100 MG (50 MG, 2  IN 1 D),ORAL
     Route: 048
     Dates: start: 20090605, end: 20090616
  2. METHOTREXATE [Concomitant]
  3. PREDNISONE [Concomitant]
  4. CYMBALTA [Concomitant]
  5. FOLIC ACID [Concomitant]
  6. XANAX [Concomitant]
  7. HYDROCODONE [Concomitant]
  8. COUMADIN [Concomitant]

REACTIONS (1)
  - SUICIDAL IDEATION [None]
